FAERS Safety Report 20152831 (Version 1)
Quarter: 2021Q4

REPORT INFORMATION
  Report Type: Spontaneous
  Country: US (occurrence: None)
  Receive Date: 20211206
  Receipt Date: 20211206
  Transmission Date: 20220303
  Serious: Yes (Disabling)
  Sender: FDA-Public Use
  Company Number: None

PATIENT
  Age: 48 Year
  Sex: Female
  Weight: 51.75 kg

DRUGS (1)
  1. CIPRO [Suspect]
     Active Substance: CIPROFLOXACIN HYDROCHLORIDE
     Indication: Ear infection
     Dosage: FREQUENCY : EVERY 12 HOURS;?
     Route: 048
     Dates: start: 20210811, end: 20210821

REACTIONS (8)
  - Feeling hot [None]
  - Paraesthesia [None]
  - Pain in extremity [None]
  - Clostridium difficile infection [None]
  - Tendon pain [None]
  - Insomnia [None]
  - Tinnitus [None]
  - Hot flush [None]

NARRATIVE: CASE EVENT DATE: 20210830
